FAERS Safety Report 10486031 (Version 1)
Quarter: 2014Q3

REPORT INFORMATION
  Report Type: Spontaneous
  Country: US (occurrence: None)
  Receive Date: 20140929
  Receipt Date: 20140929
  Transmission Date: 20150326
  Serious: Yes (Other)
  Sender: FDA-Public Use
  Company Number: FK201403793

PATIENT
  Age: 23 Year
  Sex: Female

DRUGS (1)
  1. LEVETIRACETAM. [Suspect]
     Active Substance: LEVETIRACETAM
     Dosage: 1 GM, LOADING DOSE, UNKNOWN

REACTIONS (4)
  - Toxicity to various agents [None]
  - Myalgia [None]
  - Renal failure acute [None]
  - Decreased appetite [None]
